FAERS Safety Report 10086118 (Version 1)
Quarter: 2014Q2

REPORT INFORMATION
  Report Type: Spontaneous
  Country: SE (occurrence: None)
  Receive Date: 20140416
  Receipt Date: 20140416
  Transmission Date: 20141212
  Serious: Yes (Hospitalization)
  Sender: FDA-Public Use
  Company Number: AXC-2014-000053

PATIENT
  Age: 60 Year
  Sex: Male

DRUGS (10)
  1. NITROGLYCERIN  (NITROGLYCERIN) RECTAL OINTMENT [Suspect]
     Indication: HAEMORRHOIDS
     Dates: start: 20131112, end: 20131112
  2. OMEPRAZOLE (OMEPRAZOLE) [Concomitant]
  3. URSOFALK (URSODEOXYCHOLIC ACID) [Concomitant]
  4. ASACOL (MESALAZINE) [Concomitant]
  5. SAROTEN (AMITRIPTYLINE HYDROCHLORIDE) [Concomitant]
  6. LACTULOSE (LACTULOSE) [Concomitant]
  7. XYLOPROCT (HYDROCORTISONE ACETATE, LIDOCAINE) [Concomitant]
  8. XYLOCAIN (LIDOCAINE HYDROCHLORIDE) [Concomitant]
  9. ALVEDON [Concomitant]
  10. ZOMIG (ZOLMITRIPTAN) [Concomitant]

REACTIONS (4)
  - Headache [None]
  - Vomiting [None]
  - Nausea [None]
  - Off label use [None]
